FAERS Safety Report 11694444 (Version 1)
Quarter: 2015Q4

REPORT INFORMATION
  Report Type: Other
  Country: US (occurrence: US)
  Receive Date: 20151103
  Receipt Date: 20151103
  Transmission Date: 20160304
  Serious: Yes (Other)
  Sender: FDA-Public Use
  Company Number: US-DOLGENCORP-1043690

PATIENT
  Age: 17 Year
  Sex: Male
  Weight: 70.46 kg

DRUGS (2)
  1. DIPHENHYDRAMINE HCL [Suspect]
     Active Substance: DIPHENHYDRAMINE HYDROCHLORIDE
     Route: 048
     Dates: start: 20151020, end: 20151020
  2. DIPHENHYDRAMINE HCL [Suspect]
     Active Substance: DIPHENHYDRAMINE HYDROCHLORIDE
     Route: 048
     Dates: start: 20151020, end: 20151020

REACTIONS (5)
  - Dysarthria [None]
  - Intentional overdose [None]
  - Hallucination [None]
  - Fatigue [None]
  - Overdose [Recovered/Resolved]

NARRATIVE: CASE EVENT DATE: 20151020
